FAERS Safety Report 6719264-4 (Version None)
Quarter: 2010Q2

REPORT INFORMATION
  Report Type: 
  Country: None (occurrence: None)
  Receive Date: 20100507
  Receipt Date: 20100423
  Transmission Date: 20101027
  Serious: Yes (Hospitalization)
  Sender: FDA-Public Use
  Company Number: MC201000138

PATIENT
  Age: 75 Year
  Sex: Male
  Weight: 84 kg

DRUGS (4)
  1. ANGIOMAX [Suspect]
     Dosage: SEE IMAGE
     Route: 042
     Dates: start: 20080128, end: 20080128
  2. ASPIRIN (ACETLYSALICYLIAC ACID) [Concomitant]
  3. PLAVIX [Concomitant]
  4. REOPRO (ABCIXIMAB) [Concomitant]

REACTIONS (6)
  - ANGINA UNSTABLE [None]
  - CHEST DISCOMFORT [None]
  - COAGULATION TIME PROLONGED [None]
  - CORONARY ARTERY OCCLUSION [None]
  - DYSPNOEA [None]
  - OVERDOSE [None]
